FAERS Safety Report 9381851 (Version 3)
Quarter: 2014Q1

REPORT INFORMATION
  Report Type: Spontaneous
  Country: FR (occurrence: FR)
  Receive Date: 20130703
  Receipt Date: 20140102
  Transmission Date: 20141002
  Serious: Yes (Hospitalization)
  Sender: FDA-Public Use
  Company Number: FR-PFIZER INC-2013193909

PATIENT
  Sex: Male
  Weight: 2.37 kg

DRUGS (2)
  1. PROSTINE E2 [Suspect]
     Indication: LABOUR INDUCTION
     Dosage: 2 MG, UNK
     Route: 064
     Dates: start: 20031009, end: 20031009
  2. SYNTOCINON [Suspect]
     Indication: LABOUR INDUCTION
     Dosage: UNK
     Route: 064
     Dates: start: 20031009, end: 20031009

REACTIONS (1)
  - Foetal distress syndrome [Recovered/Resolved with Sequelae]
